APPROVED DRUG PRODUCT: RIZATRIPTAN BENZOATE
Active Ingredient: RIZATRIPTAN BENZOATE
Strength: EQ 5MG BASE
Dosage Form/Route: TABLET;ORAL
Application: A204090 | Product #001
Applicant: AVET LIFESCIENCES LTD
Approved: Nov 26, 2013 | RLD: No | RS: No | Type: DISCN